FAERS Safety Report 8597898-2 (Version None)
Quarter: 2012Q3

REPORT INFORMATION
  Report Type: 
  Country: None (occurrence: None)
  Receive Date: 20120816
  Receipt Date: 20120606
  Transmission Date: 20120928
  Serious: Yes (Hospitalization, Other)
  Sender: FDA-Public Use
  Company Number: TR-BAYER-2012-083531

PATIENT
  Age: 67 Year
  Sex: Male

DRUGS (3)
  1. ANTIBIOTICS [Concomitant]
     Indication: PROSTATITIS
     Dosage: DAILY DOSE 200 MG
  2. CIPROFLOXACIN HCL [Suspect]
     Indication: ANTIBIOTIC PROPHYLAXIS
     Dosage: 500 MG, BID
  3. CEFTRIAXONE [Concomitant]
     Indication: PROSTATITIS
     Dosage: 1 G, BID

REACTIONS (6)
  - PYREXIA [None]
  - MALAISE [None]
  - DRUG RESISTANCE [None]
  - PROSTATITIS [None]
  - DYSURIA [None]
  - CHILLS [None]
